FAERS Safety Report 9297625 (Version 1)
Quarter: 2013Q2

REPORT INFORMATION
  Report Type: Spontaneous
  Country: US (occurrence: US)
  Receive Date: 20130520
  Receipt Date: 20130520
  Transmission Date: 20140414
  Serious: No
  Sender: FDA-Public Use
  Company Number: US-PFIZER INC-2013154337

PATIENT
  Age: 51 Year
  Sex: Male
  Weight: 137.42 kg

DRUGS (4)
  1. LYRICA [Suspect]
     Indication: NERVE INJURY
     Dosage: 300 MG, 2X/DAY
     Route: 048
  2. COUMADINE [Concomitant]
     Indication: ANTICOAGULANT THERAPY
     Dosage: UNK
  3. ASPIRIN [Concomitant]
     Indication: HEADACHE
     Dosage: UNK, AS NEEDED
  4. CYMBALTA [Concomitant]
     Indication: DEPRESSION
     Dosage: 90 MG, UNK

REACTIONS (1)
  - Depression [Not Recovered/Not Resolved]
